FAERS Safety Report 20380005 (Version 2)
Quarter: 2022Q1

REPORT INFORMATION
  Report Type: Spontaneous
  Country: US (occurrence: US)
  Receive Date: 20220126
  Receipt Date: 20220201
  Transmission Date: 20220423
  Serious: Yes (Death, Other)
  Sender: FDA-Public Use
  Company Number: US-ALLERGAN-2202982US

PATIENT
  Sex: Female

DRUGS (1)
  1. SAPHRIS [Suspect]
     Active Substance: ASENAPINE MALEATE
     Indication: Post-traumatic stress disorder
     Dosage: UNK
     Dates: start: 2010, end: 2012

REACTIONS (8)
  - Death [Fatal]
  - Suicidal ideation [Unknown]
  - Condition aggravated [Unknown]
  - Disturbance in attention [Unknown]
  - Abnormal behaviour [Unknown]
  - Depression [Unknown]
  - Off label use [Unknown]
  - Increased appetite [Unknown]
